FAERS Safety Report 17895556 (Version 1)
Quarter: 2020Q2

REPORT INFORMATION
  Report Type: Spontaneous
  Country: US (occurrence: US)
  Receive Date: 20200615
  Receipt Date: 20200615
  Transmission Date: 20200714
  Serious: Yes (Other)
  Sender: FDA-Public Use
  Company Number: US-PFIZER INC-2020228293

PATIENT
  Sex: Male

DRUGS (4)
  1. VINBLASTINE [Suspect]
     Active Substance: VINBLASTINE
     Dosage: UNK,  (EVERY 2 WEEKS, 4 TREATMENTS OVER A PERIOD OF 8 WEEKS)
  2. CISPLATIN. [Suspect]
     Active Substance: CISPLATIN
     Dosage: UNK,  (EVERY 2 WEEKS, 4 TREATMENTS OVER A PERIOD OF 8 WEEKS)
  3. METHOTREXATE SODIUM. [Suspect]
     Active Substance: METHOTREXATE SODIUM
     Dosage: UNK (EVERY 2 WEEKS, 4 TREATMENTS OVER A PERIOD OF 8 WEEKS)
  4. ADRIAMYCIN [Suspect]
     Active Substance: DOXORUBICIN HYDROCHLORIDE
     Dosage: UNK (EVERY 2 WEEKS, 4 TREATMENTS OVER A PERIOD OF 8 WEEKS)

REACTIONS (18)
  - Alopecia [Unknown]
  - Erectile dysfunction [Unknown]
  - Stress [Unknown]
  - Tinnitus [Unknown]
  - Calculus urinary [Unknown]
  - Flank pain [Unknown]
  - Asthenia [Unknown]
  - Nausea [Unknown]
  - Vomiting [Unknown]
  - Fatigue [Unknown]
  - Diarrhoea [Unknown]
  - Hypoaesthesia [Unknown]
  - Neuralgia [Unknown]
  - Constipation [Unknown]
  - Neuropathy peripheral [Unknown]
  - Weight decreased [Unknown]
  - Decreased appetite [Unknown]
  - Libido decreased [Unknown]
